FAERS Safety Report 9357377 (Version 4)
Quarter: 2013Q4

REPORT INFORMATION
  Report Type: Spontaneous
  Country: DK (occurrence: DK)
  Receive Date: 20130620
  Receipt Date: 20131025
  Transmission Date: 20140711
  Serious: Yes (Other)
  Sender: FDA-Public Use
  Company Number: DK-JNJFOC-20130607848

PATIENT
  Age: 41 Year
  Sex: Female

DRUGS (10)
  1. DOXORUBICIN [Suspect]
     Indication: EWING^S SARCOMA
     Dosage: REDUCED DOSE
     Route: 042
  2. DOXORUBICIN [Suspect]
     Indication: EWING^S SARCOMA
     Dosage: FOR 3 DAYS IN 4 SERIES
     Route: 042
  3. VINCRISTINE [Suspect]
     Indication: EWING^S SARCOMA
     Dosage: FIVE CYCLES
     Route: 065
  4. VINCRISTINE [Suspect]
     Indication: EWING^S SARCOMA
     Dosage: SIX CYCLES WITH TREATMENT BREAK BETWEEN CYCLES
     Route: 065
  5. IFOSFAMIDE [Interacting]
     Indication: EWING^S SARCOMA
     Dosage: FOR 3 DAYS; FIVE CYCLES
     Route: 065
  6. ETOPOSIDE [Interacting]
     Indication: EWING^S SARCOMA
     Dosage: REDUCED DOSE
     Route: 065
  7. ETOPOSIDE [Interacting]
     Indication: EWING^S SARCOMA
     Dosage: FOR 3 DAYS IN 2 SERIES
     Route: 065
  8. PREDNISOLONE [Interacting]
     Indication: EWING^S SARCOMA
     Route: 065
  9. MIRTAZAPINE [Interacting]
     Indication: EWING^S SARCOMA
     Route: 065
  10. FLUCONAZOLE [Concomitant]
     Indication: PROPHYLAXIS
     Dosage: IN CYCLES OF 10 DAYS
     Route: 065

REACTIONS (7)
  - Oral candidiasis [Recovering/Resolving]
  - Neuropathy peripheral [Not Recovered/Not Resolved]
  - Renal impairment [Recovering/Resolving]
  - Drug interaction [Unknown]
  - Bone marrow failure [Recovering/Resolving]
  - Mucosal inflammation [Recovering/Resolving]
  - Off label use [Unknown]
